FAERS Safety Report 23648894 (Version 6)
Quarter: 2024Q3

REPORT INFORMATION
  Report Type: Spontaneous
  Country: US (occurrence: US)
  Receive Date: 20240319
  Receipt Date: 20240729
  Transmission Date: 20241016
  Serious: Yes (Hospitalization, Other)
  Sender: BIOVITRUM
  Company Number: None

PATIENT
  Age: 75 Year
  Sex: Male

DRUGS (2)
  1. VONJO [Suspect]
     Active Substance: PACRITINIB
     Indication: Myelodysplastic syndrome
     Dosage: 200 MG, BID (TWICE DAILY)
     Route: 048
     Dates: start: 20240220
  2. VONJO [Suspect]
     Active Substance: PACRITINIB
     Dosage: 200 MG DAILY
     Route: 048
     Dates: start: 20240210

REACTIONS (13)
  - Constipation [Recovered/Resolved]
  - Pancytopenia [Recovered/Resolved]
  - Pyrexia [Unknown]
  - Diarrhoea [Unknown]
  - Product dose omission issue [Unknown]
  - White blood cell count decreased [Unknown]
  - Intentional product misuse [Not Recovered/Not Resolved]
  - Tremor [Unknown]
  - Unevaluable event [Unknown]
  - Decreased activity [Unknown]
  - Abdominal discomfort [Unknown]
  - Vomiting [Unknown]
  - Illness [Unknown]

NARRATIVE: CASE EVENT DATE: 20240220
